FAERS Safety Report 7292599-5 (Version None)
Quarter: 2011Q1

REPORT INFORMATION
  Report Type: 
  Country: None (occurrence: None)
  Receive Date: 20110215
  Receipt Date: 20110209
  Transmission Date: 20110831
  Serious: Yes (Hospitalization, Other)
  Sender: FDA-Public Use
  Company Number: US-SANOFI-AVENTIS-2011SA003218

PATIENT
  Age: 63 Year
  Sex: Male
  Weight: 111.36 kg

DRUGS (16)
  1. LOPRESSOR [Concomitant]
  2. VITAMIN D [Concomitant]
     Dosage: DOSE:1000 UNIT(S)
  3. DILTIAZEM [Concomitant]
  4. LOVENOX [Suspect]
     Route: 065
     Dates: start: 20110112, end: 20110113
  5. FUROSEMIDE [Concomitant]
  6. VALSARTAN [Concomitant]
  7. ALL OTHER THERAPEUTIC PRODUCTS [Concomitant]
  8. BACLOFEN [Concomitant]
     Route: 048
  9. SIMVASTATIN [Concomitant]
  10. WARFARIN [Concomitant]
  11. LOVENOX [Suspect]
     Route: 065
     Dates: start: 20110104, end: 20110105
  12. LANTUS [Concomitant]
  13. OMEPRAZOLE [Concomitant]
  14. LOVENOX [Suspect]
     Indication: ANTICOAGULANT THERAPY
     Route: 065
     Dates: start: 20101226, end: 20110103
  15. LOVENOX [Suspect]
     Route: 065
     Dates: start: 20110106, end: 20110111
  16. INSULIN PEN NOS [Concomitant]
     Dosage: DOSE:18 UNIT(S)

REACTIONS (7)
  - TRANSIENT ISCHAEMIC ATTACK [None]
  - PERITONEAL HAEMORRHAGE [None]
  - BLOOD BLISTER [None]
  - CONTUSION [None]
  - CONVULSION [None]
  - INTERNATIONAL NORMALISED RATIO DECREASED [None]
  - PROCEDURAL VOMITING [None]
